FAERS Safety Report 8876613 (Version 3)
Quarter: 2014Q1

REPORT INFORMATION
  Report Type: Spontaneous
  Country: US (occurrence: None)
  Receive Date: 20120426
  Receipt Date: 20130107
  Transmission Date: 20141002
  Serious: No
  Sender: FDA-Public Use
  Company Number: PHEH2012US003926

PATIENT
  Age: 48 Year
  Sex: Female
  Weight: 74.8 kg

DRUGS (9)
  1. GILENYA (FTY) CAPSULE, 0.5MG [Suspect]
     Indication: MULTIPLE SCLEROSIS
     Route: 048
     Dates: start: 20120207
  2. RITALIN [Concomitant]
  3. ZOLOFT (SERTRALINE HYDROCHLORIDE) [Concomitant]
  4. VICODIN (HYDROCODONE BITARTRATE, PARACETAMOL) [Concomitant]
  5. SOMA (CARISOPRODOL) [Concomitant]
  6. ACIPHEX (RABEPRAZOLE SODIUM) [Concomitant]
  7. GABAPENTIN [Concomitant]
  8. FOCALIN (DEXMETHYLPHENIDATE HYDROCHLORIDE) [Concomitant]
  9. AMITRIPTYLINE [Concomitant]

REACTIONS (6)
  - Dysphonia [None]
  - Hyperhidrosis [None]
  - Headache [None]
  - Oropharyngeal pain [None]
  - Visual impairment [None]
  - Diarrhoea [None]
